FAERS Safety Report 4611082-6 (Version None)
Quarter: 2005Q2

REPORT INFORMATION
  Report Type: 
  Country: None (occurrence: None)
  Receive Date: 20050314
  Receipt Date: 20041112
  Transmission Date: 20051028
  Serious: Yes (Hospitalization)
  Sender: FDA-Public Use
  Company Number: USA041184031

PATIENT
  Sex: Male

DRUGS (2)
  1. GEMZAR [Suspect]
     Indication: LUNG NEOPLASM MALIGNANT
     Dates: start: 20041027, end: 20041027
  2. CARBOPLATIN [Concomitant]

REACTIONS (5)
  - ASTHENIA [None]
  - HAEMOLYSIS [None]
  - PLATELET COUNT DECREASED [None]
  - RHABDOMYOLYSIS [None]
  - THROMBOTIC THROMBOCYTOPENIC PURPURA [None]
